FAERS Safety Report 19455506 (Version 1)
Quarter: 2021Q2

REPORT INFORMATION
  Report Type: Spontaneous
  Country: GR (occurrence: GR)
  Receive Date: 20210623
  Receipt Date: 20210623
  Transmission Date: 20210717
  Serious: Yes (Other)
  Sender: FDA-Public Use
  Company Number: GR-ORGANON-O2106GRC001767

PATIENT
  Sex: Male

DRUGS (2)
  1. CELESTONE CHRONODOSE [Suspect]
     Active Substance: BETAMETHASONE ACETATE\BETAMETHASONE SODIUM PHOSPHATE
     Indication: PERIPHERAL SWELLING
     Dosage: 1 INJECTION
     Dates: start: 20210614
  2. CELESTONE CHRONODOSE [Suspect]
     Active Substance: BETAMETHASONE ACETATE\BETAMETHASONE SODIUM PHOSPHATE
     Indication: PAIN IN EXTREMITY

REACTIONS (8)
  - Mental impairment [Unknown]
  - Limb discomfort [Unknown]
  - Hypoacusis [Unknown]
  - Amnesia [Unknown]
  - Dementia [Unknown]
  - Hypokinesia [Unknown]
  - Fatigue [Unknown]
  - Visual impairment [Unknown]

NARRATIVE: CASE EVENT DATE: 202106
